FAERS Safety Report 14939977 (Version 1)
Quarter: 2018Q2

REPORT INFORMATION
  Report Type: Spontaneous
  Country: US (occurrence: US)
  Receive Date: 20180507
  Receipt Date: 20180507
  Transmission Date: 20180711
  Serious: Yes (Hospitalization)
  Sender: FDA-Public Use
  Company Number: None

PATIENT
  Sex: Male

DRUGS (33)
  1. STELARA [Suspect]
     Active Substance: USTEKINUMAB
     Indication: CROHN^S DISEASE
     Dosage: 90 MG Q2WKS SC?
     Route: 058
     Dates: start: 20170218
  2. AMOXICILLIN. [Concomitant]
     Active Substance: AMOXICILLIN
  3. LOMOTIL [Concomitant]
     Active Substance: ATROPINE SULFATE\DIPHENOXYLATE HYDROCHLORIDE
  4. PROBIOTIC [Concomitant]
     Active Substance: PROBIOTICS NOS
  5. INJECTAFER [Concomitant]
     Active Substance: FERRIC CARBOXYMALTOSE
  6. GAMMAGARD [Concomitant]
     Active Substance: HUMAN IMMUNOGLOBULIN G
  7. CETIRIZINE [Concomitant]
     Active Substance: CETIRIZINE HYDROCHLORIDE
  8. ESCITALOPRAM [Concomitant]
     Active Substance: ESCITALOPRAM OXALATE
  9. FOLIC ACID. [Concomitant]
     Active Substance: FOLIC ACID
  10. TRIAMINIC CHILDRENS NIGHT TIME COLD AND COUGH [Concomitant]
     Active Substance: DIPHENHYDRAMINE HYDROCHLORIDE\PHENYLEPHRINE HYDROCHLORIDE
  11. PROLIA [Suspect]
     Active Substance: DENOSUMAB
     Indication: OSTEOPOROSIS
     Dosage: 60 MG Q6MOS SC
     Route: 058
     Dates: start: 20160727
  12. TRIAMCINOLON [Concomitant]
  13. CALCITRIOL. [Concomitant]
     Active Substance: CALCITRIOL
  14. DIPHENHYDRAM [Concomitant]
  15. ANDROGEL [Concomitant]
     Active Substance: TESTOSTERONE
  16. PANTOPRAZOLE [Concomitant]
     Active Substance: PANTOPRAZOLE
  17. A-HYDROCORT [Concomitant]
     Active Substance: HYDROCORTISONE SODIUM SUCCINATE
  18. LOPERAMIDE [Concomitant]
     Active Substance: LOPERAMIDE
  19. ZINC. [Concomitant]
     Active Substance: ZINC
  20. PROMETHAZINE [Concomitant]
     Active Substance: PROMETHAZINE\PROMETHAZINE HYDROCHLORIDE
  21. COUMADIN [Concomitant]
     Active Substance: WARFARIN SODIUM
  22. CALCIFEROL [Concomitant]
     Active Substance: ERGOCALCIFEROL
  23. VITAMIN D3 [Concomitant]
     Active Substance: CHOLECALCIFEROL
  24. WARFARIN [Concomitant]
     Active Substance: WARFARIN
  25. ZOLMITRIPTAN. [Concomitant]
     Active Substance: ZOLMITRIPTAN
  26. KETOROLAC [Concomitant]
     Active Substance: KETOROLAC\KETOROLAC TROMETHAMINE
  27. FEROCON [Concomitant]
     Active Substance: FERROUS FUMARATE\FOLIC ACID\VITAMIN B COMPLEX
  28. FEXOFENADINE [Concomitant]
     Active Substance: FEXOFENADINE\FEXOFENADINE HYDROCHLORIDE
  29. VITAMIN B12 [Concomitant]
     Active Substance: CYANOCOBALAMIN
  30. LIDODERM [Concomitant]
     Active Substance: LIDOCAINE
  31. AZATHIOPRINE. [Concomitant]
     Active Substance: AZATHIOPRINE
  32. CALCIUM CIT [Concomitant]
  33. HYDROCO/APAP [Concomitant]
     Active Substance: ACETAMINOPHEN\HYDROCODONE

REACTIONS (1)
  - Abdominal pain [None]

NARRATIVE: CASE EVENT DATE: 2018
